FAERS Safety Report 7586622-8 (Version None)
Quarter: 2011Q3

REPORT INFORMATION
  Report Type: 
  Country: None (occurrence: None)
  Receive Date: 20110701
  Receipt Date: 20110615
  Transmission Date: 20111222
  Serious: Yes (Hospitalization, Other)
  Sender: FDA-Public Use
  Company Number: US-BAYER-2011-024469

PATIENT
  Age: 17 Year
  Sex: Female
  Weight: 87.982 kg

DRUGS (6)
  1. DROSPIRENONE AND ETHINYL ESTRADIOL [Suspect]
  2. MUPIROCIN [Concomitant]
     Dosage: UNK
     Route: 061
     Dates: start: 20090126
  3. YAZ [Suspect]
  4. YASMIN [Suspect]
  5. CEPHALEXIN [Concomitant]
     Dosage: 250 MG, UNK
     Route: 048
     Dates: start: 20090126
  6. DICYCLOMINE [Concomitant]
     Indication: ABDOMINAL PAIN
     Dosage: 10 MG, UNK
     Route: 048
     Dates: start: 20090124

REACTIONS (5)
  - INJURY [None]
  - ABDOMINAL PAIN [None]
  - SYNCOPE [None]
  - VOMITING [None]
  - CHOLECYSTITIS CHRONIC [None]
